FAERS Safety Report 6437600-3 (Version None)
Quarter: 2009Q4

REPORT INFORMATION
  Report Type: 
  Country: None (occurrence: None)
  Receive Date: 20091112
  Receipt Date: 20091029
  Transmission Date: 20100525
  Serious: Yes (Other)
  Sender: FDA-Public Use
  Company Number: CA-GENENTECH-293002

PATIENT
  Age: 26 Year
  Sex: Male

DRUGS (2)
  1. RITUXAN [Suspect]
     Indication: SYSTEMIC LUPUS ERYTHEMATOSUS
     Dosage: UNK
     Route: 042
     Dates: start: 20090921
  2. RITUXAN [Suspect]
     Indication: POLYARTHRITIS

REACTIONS (1)
  - SERUM SICKNESS [None]
